FAERS Safety Report 12828371 (Version 1)
Quarter: 2016Q4

REPORT INFORMATION
  Report Type: Spontaneous
  Country: US (occurrence: US)
  Receive Date: 20161007
  Receipt Date: 20161007
  Transmission Date: 20170207
  Serious: No
  Sender: FDA-Public Use
  Company Number: US-KALEO, INC-EVZI20160013

PATIENT
  Sex: Female

DRUGS (3)
  1. NARCAN [Suspect]
     Active Substance: NALOXONE HYDROCHLORIDE
     Indication: OVERDOSE
     Route: 045
     Dates: start: 20160501, end: 20160501
  2. HEROIN [Suspect]
     Active Substance: DIACETYLMORPHINE
     Indication: PRODUCT USED FOR UNKNOWN INDICATION
     Route: 065
  3. EVZIO [Suspect]
     Active Substance: NALOXONE HYDROCHLORIDE
     Indication: OVERDOSE
     Dosage: ONCE IM OR SC
     Dates: start: 20160501, end: 20160501

REACTIONS (1)
  - Hypoaesthesia oral [None]

NARRATIVE: CASE EVENT DATE: 20160501
